FAERS Safety Report 7996423-4 (Version None)
Quarter: 2011Q4

REPORT INFORMATION
  Report Type: 
  Country: None (occurrence: None)
  Receive Date: 20111220
  Receipt Date: 20111205
  Transmission Date: 20120403
  Serious: Yes (Hospitalization, Other)
  Sender: FDA-Public Use
  Company Number: FR-WATSON-2011-21819

PATIENT
  Age: 54 Year
  Sex: Female

DRUGS (3)
  1. TACROLIMUS [Suspect]
     Indication: RENAL TRANSPLANT
  2. PREDNISONE TAB [Suspect]
     Indication: RENAL TRANSPLANT
     Dosage: 5 MG, DAILY
  3. MYCOPHENOLATE MEFETIL [Suspect]
     Indication: RENAL TRANSPLANT
     Dosage: 500 MG, BID
     Route: 065

REACTIONS (5)
  - ZYGOMYCOSIS [None]
  - RENAL FAILURE [None]
  - ANAEMIA [None]
  - LEUKOPENIA [None]
  - SINUSITIS [None]
